FAERS Safety Report 11445531 (Version 2)
Quarter: 2015Q4

REPORT INFORMATION
  Report Type: Spontaneous
  Country: IT (occurrence: IT)
  Receive Date: 20150902
  Receipt Date: 20151120
  Transmission Date: 20160304
  Serious: Yes (Hospitalization)
  Sender: FDA-Public Use
  Company Number: IT-SA-2015SA130266

PATIENT
  Age: 79 Year
  Sex: Female

DRUGS (2)
  1. LUVION [Suspect]
     Active Substance: CANRENONE
     Route: 048
     Dates: start: 20150101, end: 20150612
  2. LASIX [Suspect]
     Active Substance: FUROSEMIDE
     Route: 048
     Dates: start: 20150101, end: 20150612

REACTIONS (3)
  - Dyspepsia [Recovered/Resolved]
  - Hyponatraemia [Recovered/Resolved]
  - Vomiting [Recovered/Resolved]

NARRATIVE: CASE EVENT DATE: 20150611
